FAERS Safety Report 6548017-5 (Version None)
Quarter: 2010Q1

REPORT INFORMATION
  Report Type: 
  Country: None (occurrence: None)
  Receive Date: 20100124
  Receipt Date: 20091202
  Transmission Date: 20100710
  Serious: No
  Sender: FDA-Public Use
  Company Number: US-ALEXION-A200901031

PATIENT
  Sex: Female

DRUGS (7)
  1. SOLIRIS [Suspect]
     Indication: PAROXYSMAL NOCTURNAL HAEMOGLOBINURIA
     Dosage: 600 MG, UNK
     Route: 042
     Dates: start: 20070618
  2. SOLIRIS [Suspect]
     Dosage: 900 MG, Q2W
     Route: 042
     Dates: start: 20070731
  3. BONIVA [Concomitant]
     Dosage: 1 X MONTH
     Route: 048
  4. FOLIC ACID [Concomitant]
     Dosage: 1 MG, QD
     Route: 048
  5. LISINOPRIL [Concomitant]
     Dosage: 20 MG, QD
     Route: 048
  6. NORVASC [Concomitant]
     Dosage: 5 MG, QD
     Route: 048
  7. VIACTIV                            /00751501/ [Concomitant]
     Dosage: UNK
     Route: 048

REACTIONS (2)
  - HEADACHE [None]
  - MUSCULOSKELETAL STIFFNESS [None]
